FAERS Safety Report 22098017 (Version 1)
Quarter: 2023Q1

REPORT INFORMATION
  Report Type: Spontaneous
  Country: US (occurrence: None)
  Receive Date: 20230314
  Receipt Date: 20230314
  Transmission Date: 20230418
  Serious: Yes (Hospitalization)
  Sender: FDA-Public Use
  Company Number: None

PATIENT
  Age: 58 Year
  Sex: Female
  Weight: 74.25 kg

DRUGS (4)
  1. CLENPIQ [Suspect]
     Active Substance: ANHYDROUS CITRIC ACID\MAGNESIUM OXIDE\SODIUM PICOSULFATE
     Indication: Colonoscopy
     Dates: start: 20230308, end: 20230309
  2. Women One a Day Vitamins [Concomitant]
  3. CALCIUM [Concomitant]
     Active Substance: CALCIUM
  4. MIRALAX [Concomitant]
     Active Substance: POLYETHYLENE GLYCOL 3350

REACTIONS (14)
  - Thirst [None]
  - Feeling hot [None]
  - Dizziness [None]
  - Paraesthesia [None]
  - Hypoaesthesia [None]
  - Hypoaesthesia [None]
  - Hypoaesthesia [None]
  - Muscle spasms [None]
  - Movement disorder [None]
  - Oxygen saturation decreased [None]
  - Dysarthria [None]
  - Muscular weakness [None]
  - Loss of consciousness [None]
  - Dehydration [None]

NARRATIVE: CASE EVENT DATE: 20230309
